FAERS Safety Report 15230026 (Version 1)
Quarter: 2018Q4

REPORT INFORMATION
  Report Type: Spontaneous
  Country: US (occurrence: US)
  Receive Date: 20180802
  Receipt Date: 20180802
  Transmission Date: 20190204
  Serious: Yes (Other)
  Sender: FDA-Public Use
  Company Number: US-ACCORD-062666

PATIENT
  Age: 48 Year
  Sex: Female

DRUGS (25)
  1. OMEPRAZOLE. [Concomitant]
     Active Substance: OMEPRAZOLE
  2. AUGMENTIN [Concomitant]
     Active Substance: AMOXICILLIN\CLAVULANATE POTASSIUM
     Dosage: STRENGTH: 875-125 MG, 1 PO BID (TWO TIMES)
     Route: 048
  3. CYCLOPHOSPHAMIDE/CYCLOPHOSPHAMIDE MONOHYDRATE [Suspect]
     Active Substance: CYCLOPHOSPHAMIDE
     Indication: BREAST CANCER
     Dates: start: 20150910, end: 20151112
  4. COLECALCIFEROL [Concomitant]
     Active Substance: CHOLECALCIFEROL
     Route: 048
  5. DOCETAXEL ACCORD [Suspect]
     Active Substance: DOCETAXEL
     Indication: BREAST CANCER
     Dosage: NO OF CYCLE: 04
     Route: 042
     Dates: start: 20150910, end: 20151112
  6. EFFEXOR XR [Concomitant]
     Active Substance: VENLAFAXINE HYDROCHLORIDE
     Dosage: STRENGTH: 37.5 MG??TAKE 1 CAPSULE(S) PO DAILY AT HS (AT BEDTIME)
     Route: 048
  7. CURCUMA LONGA [Concomitant]
     Active Substance: HERBALS\TURMERIC
     Route: 048
  8. PALONOSETRON. [Concomitant]
     Active Substance: PALONOSETRON HYDROCHLORIDE
     Dosage: STRENGTH: 0.25 MG
     Route: 042
  9. DIPHENHYDRAMINE. [Concomitant]
     Active Substance: DIPHENHYDRAMINE
     Dosage: STRENGTH: 25 MG
     Route: 042
  10. HEPARIN LOCK FLUSH [Concomitant]
     Active Substance: HEPARIN SODIUM
     Dosage: 10 UNITS
  11. TOPROL XL [Concomitant]
     Active Substance: METOPROLOL SUCCINATE
     Dates: start: 20050101
  12. DEXAMETHASONE. [Concomitant]
     Active Substance: DEXAMETHASONE
     Dosage: STRENGTH: 10 MG
     Route: 042
  13. TEMAZEPAM. [Concomitant]
     Active Substance: TEMAZEPAM
     Dosage: STRENGTH: 15 MG??TAKE 1 PO OHS (EVERY NIGHT AT BEDTIME)
     Route: 048
  14. GABAPENTIN. [Concomitant]
     Active Substance: GABAPENTIN
     Dosage: STRENGTH: 300 MG, TAKE 1 PO QHS (EVERY NIGHT AT BEDTIME)
     Route: 048
  15. FUROSEMIDE. [Concomitant]
     Active Substance: FUROSEMIDE
     Dosage: STRENGTH: 40 MG
     Route: 048
  16. MINOXIDIL. [Concomitant]
     Active Substance: MINOXIDIL
     Dates: start: 20151101
  17. DEXAMETHASONE. [Concomitant]
     Active Substance: DEXAMETHASONE
     Dosage: STRENGTH: 4 MG??TAKE 2 PO BID (TWO TIMES)
     Route: 048
  18. ONDANSETRON [Concomitant]
     Active Substance: ONDANSETRON
     Dosage: STRENGTH: 4 MG??TAKE 1 PO Q6H PRN NN
     Route: 048
  19. POTASSIUM [Concomitant]
     Active Substance: POTASSIUM
     Dosage: STRENGTH: 10 MEQ
     Route: 048
  20. IBUPROFEN. [Concomitant]
     Active Substance: IBUPROFEN
     Dosage: STRENGTH: 800 MG D/C ORDER
     Route: 048
  21. NEULASTA [Concomitant]
     Active Substance: PEGFILGRASTIM
     Dosage: STRENGTH: 6 MG??ON DAY 2 OF EACH CYCLE
     Route: 058
  22. MEDROL [Concomitant]
     Active Substance: METHYLPREDNISOLONE
     Dosage: STRNGTH: 4 MG, 1 AS DIRECTED
     Route: 048
  23. LEVAQUIN [Concomitant]
     Active Substance: LEVOFLOXACIN
     Dosage: STRENGTH: 500 MG
     Route: 048
  24. ESTRADIOL. [Concomitant]
     Active Substance: ESTRADIOL
     Dates: start: 20110101, end: 20150101
  25. PREMARIN [Concomitant]
     Active Substance: ESTROGENS, CONJUGATED
     Dates: start: 2011

REACTIONS (1)
  - Alopecia [Recovering/Resolving]

NARRATIVE: CASE EVENT DATE: 20151015
